FAERS Safety Report 7791678-3 (Version None)
Quarter: 2011Q4

REPORT INFORMATION
  Report Type: 
  Country: None (occurrence: None)
  Receive Date: 20111003
  Receipt Date: 20110922
  Transmission Date: 20120403
  Serious: Yes (Other)
  Sender: FDA-Public Use
  Company Number: US-JNJFOC-20110910778

PATIENT
  Sex: Female

DRUGS (3)
  1. TYLENOL W/ CODEINE NO. 3 [Suspect]
     Indication: BACK PAIN
     Route: 048
  2. DURAGESIC-100 [Suspect]
     Indication: BACK PAIN
     Route: 062
     Dates: start: 20040101
  3. XANAX [Suspect]
     Indication: PRODUCT USED FOR UNKNOWN INDICATION
     Route: 048

REACTIONS (7)
  - DEPRESSION [None]
  - ANAPHYLACTIC REACTION [None]
  - MEDICATION ERROR [None]
  - PAIN [None]
  - MEMORY IMPAIRMENT [None]
  - APPLICATION SITE PRURITUS [None]
  - HYPERHIDROSIS [None]
